FAERS Safety Report 4663028-2 (Version None)
Quarter: 2005Q2

REPORT INFORMATION
  Report Type: 
  Country: None (occurrence: None)
  Receive Date: 20050506
  Receipt Date: 20050119
  Transmission Date: 20051028
  Serious: No
  Sender: FDA-Public Use
  Company Number: APP200500047

PATIENT
  Age: 33 Year
  Sex: Female

DRUGS (7)
  1. PROFASI HP [Suspect]
     Indication: INFERTILITY
  2. LUPRON [Suspect]
     Indication: INFERTILITY
  3. FOLLISTIM [Suspect]
     Indication: INFERTILITY
     Dosage: UNK (50 IU, 150 IU, THEN 50 IU)
  4. PROGESTERONE [Concomitant]
  5. VIVELLE [Concomitant]
  6. LOVENOX [Concomitant]
  7. ACETYLSALICYLIC ACID SRT [Concomitant]

REACTIONS (1)
  - OVARIAN HYPERSTIMULATION SYNDROME [None]
